FAERS Safety Report 5820080-6 (Version None)
Quarter: 2008Q3

REPORT INFORMATION
  Report Type: 
  Country: None (occurrence: None)
  Receive Date: 20080724
  Receipt Date: 20080318
  Transmission Date: 20090109
  Serious: Yes (Other)
  Sender: FDA-Public Use
  Company Number: US-BAYER-200819246GPV

PATIENT
  Age: 3 Year
  Sex: Female

DRUGS (9)
  1. ALEMTUZUMAB [Suspect]
     Indication: BONE MARROW CONDITIONING REGIMEN
     Route: 065
  2. FLUDARABINE PHOSPHATE [Suspect]
     Indication: BONE MARROW CONDITIONING REGIMEN
     Route: 042
  3. MELPHALAN [Suspect]
     Indication: BONE MARROW CONDITIONING REGIMEN
     Route: 065
  4. METHOTREXATE [Concomitant]
     Indication: PROPHYLAXIS AGAINST GRAFT VERSUS HOST DISEASE
     Route: 065
  5. METHYLPREDNISOLONE [Concomitant]
     Indication: PROPHYLAXIS AGAINST GRAFT VERSUS HOST DISEASE
  6. CYCLOSPORINE [Concomitant]
     Indication: PROPHYLAXIS AGAINST GRAFT VERSUS HOST DISEASE
     Route: 065
  7. FLUCONAZOLE [Concomitant]
     Indication: ANTIFUNGAL PROPHYLAXIS
     Route: 065
  8. VORICONIZOLE [Concomitant]
     Indication: ANTIFUNGAL PROPHYLAXIS
     Route: 065
  9. NEUPOGEN [Concomitant]
     Route: 065

REACTIONS (2)
  - HEPATIC ENZYME INCREASED [None]
  - VENOOCCLUSIVE DISEASE [None]
